FAERS Safety Report 10504947 (Version 2)
Quarter: 2014Q4

REPORT INFORMATION
  Report Type: Spontaneous
  Country: VE (occurrence: VE)
  Receive Date: 20141008
  Receipt Date: 20141008
  Transmission Date: 20150528
  Serious: Yes (Hospitalization)
  Sender: FDA-Public Use
  Company Number: VE-PFIZER INC-2014251233

PATIENT
  Sex: Male

DRUGS (3)
  1. LOPID [Suspect]
     Active Substance: GEMFIBROZIL
     Indication: HYPERLIPIDAEMIA
     Dosage: 900 MG, 1X/DAY
     Route: 048
  2. ENALAPRIL [Concomitant]
     Active Substance: ENALAPRIL
     Dosage: UNK
  3. KOMBIGLYZE XR [Concomitant]
     Active Substance: METFORMIN HYDROCHLORIDE\SAXAGLIPTIN HYDROCHLORIDE
     Indication: HYPERGLYCAEMIA
     Dosage: [METFORMIN HYDROCHLORIDE 5 MG]/[SAXAGLIPTIN HYDROCHLORIDE1000 MG], UNK
     Route: 048

REACTIONS (1)
  - Glossitis [Recovered/Resolved]
